FAERS Safety Report 25727092 (Version 1)
Quarter: 2025Q3

REPORT INFORMATION
  Report Type: Spontaneous
  Country: US (occurrence: None)
  Receive Date: 20250825
  Receipt Date: 20250825
  Transmission Date: 20251021
  Serious: Yes (Disabling, Other)
  Sender: FDA-CTU
  Company Number: None

PATIENT
  Age: 42 Year
  Sex: Female
  Weight: 99 kg

DRUGS (2)
  1. WEGOVY [Suspect]
     Active Substance: SEMAGLUTIDE
  2. NEXIUM [Concomitant]
     Active Substance: ESOMEPRAZOLE MAGNESIUM

REACTIONS (7)
  - Inflammation [None]
  - Arthralgia [None]
  - Myalgia [None]
  - Musculoskeletal stiffness [None]
  - Impaired quality of life [None]
  - Skin burning sensation [None]
  - Bone pain [None]

NARRATIVE: CASE EVENT DATE: 20250601
